FAERS Safety Report 7434408-7 (Version None)
Quarter: 2011Q2

REPORT INFORMATION
  Report Type: 
  Country: None (occurrence: None)
  Receive Date: 20110425
  Receipt Date: 20110413
  Transmission Date: 20111010
  Serious: No
  Sender: FDA-Public Use
  Company Number: PHHY2011JP25078

PATIENT
  Sex: Female

DRUGS (3)
  1. FLUMETHOLON [Concomitant]
     Dosage: UNK UKN, UNK
  2. KARY UNI [Concomitant]
     Dosage: UNK UKN, UNK
  3. ZADITEN OPHTHA EYE DROPS [Suspect]
     Indication: CONJUNCTIVITIS ALLERGIC
     Dosage: UNK UKN, UNK
     Route: 047
     Dates: start: 20110318, end: 20110320

REACTIONS (4)
  - EYE SWELLING [None]
  - ERYTHEMA [None]
  - BLEPHARITIS [None]
  - EYELID OEDEMA [None]
